FAERS Safety Report 18542087 (Version 1)
Quarter: 2020Q4

REPORT INFORMATION
  Report Type: Spontaneous
  Country: FR (occurrence: FR)
  Receive Date: 20201125
  Receipt Date: 20201125
  Transmission Date: 20210114
  Serious: Yes (Other)
  Sender: FDA-Public Use
  Company Number: FR-SUN PHARMACEUTICAL INDUSTRIES LTD-2020RR-268746

PATIENT
  Age: 39 Year
  Sex: Female

DRUGS (5)
  1. ZUCLOPENTHIXOL [Suspect]
     Active Substance: ZUCLOPENTHIXOL
     Indication: SCHIZOPHRENIA
     Dosage: 600 MILLIGRAM, DAILY
     Route: 030
     Dates: start: 2015
  2. LOXAPINE BASE [Suspect]
     Active Substance: LOXAPINE
     Indication: PSYCHOTIC DISORDER
     Dosage: 200 GTT DROPS, DAILY
     Route: 048
     Dates: start: 2014, end: 20200622
  3. OLANZAPINE. [Suspect]
     Active Substance: OLANZAPINE
     Indication: SCHIZOPHRENIA
     Dosage: 30 MILLIGRAM, DAILY
     Route: 048
     Dates: start: 2017
  4. ALIMEMAZINE [Suspect]
     Active Substance: TRIMEPRAZINE
     Indication: INSOMNIA
     Dosage: 20 GTT DROPS, DAILY
     Route: 048
     Dates: start: 201911
  5. VALIUM [Suspect]
     Active Substance: DIAZEPAM
     Indication: ANXIETY
     Dosage: 120 GTT DROPS, DAILY
     Route: 048
     Dates: start: 2013, end: 20200911

REACTIONS (3)
  - Constipation [Not Recovered/Not Resolved]
  - Weight increased [Recovered/Resolved]
  - Tachycardia [Recovered/Resolved]

NARRATIVE: CASE EVENT DATE: 202006
